FAERS Safety Report 16472431 (Version 2)
Quarter: 2019Q2

REPORT INFORMATION
  Report Type: Report from Study
  Country: US (occurrence: US)
  Receive Date: 20190625
  Receipt Date: 20190627
  Transmission Date: 20190711
  Serious: Yes (Other)
  Sender: FDA-Public Use
  Company Number: US-CONCORDIA PHARMACEUTICALS INC.-GSH201906-001580

PATIENT

DRUGS (2)
  1. CLONIDINE. [Suspect]
     Active Substance: CLONIDINE
     Indication: BLOOD GROWTH HORMONE
  2. ARGININE [Suspect]
     Active Substance: ARGININE
     Indication: BLOOD GROWTH HORMONE

REACTIONS (1)
  - Haematuria [Recovered/Resolved]
